FAERS Safety Report 8574146-0 (Version None)
Quarter: 2012Q3

REPORT INFORMATION
  Report Type: 
  Country: None (occurrence: None)
  Receive Date: 20120806
  Receipt Date: 20120730
  Transmission Date: 20120928
  Serious: Yes (Other)
  Sender: FDA-Public Use
  Company Number: FR-JNJFOC-20120611560

PATIENT
  Sex: Male
  Weight: 35 kg

DRUGS (11)
  1. MICROPAKINE [Concomitant]
     Indication: EPILEPSY
     Route: 065
  2. KEPPRA [Concomitant]
     Indication: EPILEPSY
     Route: 065
  3. TOPIRAMATE [Suspect]
     Indication: EPILEPSY
     Dosage: 2 WEEKS
     Route: 048
     Dates: start: 20120503, end: 20120518
  4. TOPIRAMATE [Suspect]
     Route: 048
     Dates: start: 20120519, end: 20120522
  5. TOPIRAMATE [Suspect]
     Dosage: 2 WEEKS
     Route: 048
     Dates: start: 20120523, end: 20120606
  6. PULMICORT [Concomitant]
     Indication: PRODUCT USED FOR UNKNOWN INDICATION
     Route: 065
  7. OGAST [Concomitant]
     Indication: PRODUCT USED FOR UNKNOWN INDICATION
     Route: 065
  8. TOPIRAMATE [Suspect]
     Route: 048
     Dates: start: 20120607, end: 20120618
  9. RIVOTRIL [Concomitant]
     Indication: EPILEPSY
     Route: 065
  10. ZITHROMAX [Concomitant]
     Indication: PRODUCT USED FOR UNKNOWN INDICATION
     Route: 065
  11. SEVERAL UNSPECIFIED MEDICATIONS [Concomitant]
     Indication: PRODUCT USED FOR UNKNOWN INDICATION
     Route: 065

REACTIONS (2)
  - STEVENS-JOHNSON SYNDROME [None]
  - DEPRESSION [None]
